FAERS Safety Report 24056770 (Version 2)
Quarter: 2024Q3

REPORT INFORMATION
  Report Type: Report from Study
  Country: CA (occurrence: CA)
  Receive Date: 20240705
  Receipt Date: 20240827
  Transmission Date: 20241016
  Serious: Yes (Other)
  Sender: ABBVIE
  Company Number: CA-ABBVIE-5825955

PATIENT
  Age: 61 Year
  Sex: Female

DRUGS (2)
  1. SKYRIZI [Suspect]
     Active Substance: RISANKIZUMAB-RZAA
     Indication: Crohn^s disease
     Route: 058
     Dates: start: 2024
  2. SKYRIZI [Suspect]
     Active Substance: RISANKIZUMAB-RZAA
     Indication: Crohn^s disease
     Dosage: LAST ADMIN DATE: 2024
     Route: 042
     Dates: start: 20240513

REACTIONS (3)
  - Squamous cell carcinoma of skin [Unknown]
  - Skin procedural complication [Not Recovered/Not Resolved]
  - Postoperative wound infection [Unknown]

NARRATIVE: CASE EVENT DATE: 20240101
